FAERS Safety Report 11987793 (Version 1)
Quarter: 2016Q1

REPORT INFORMATION
  Report Type: Spontaneous
  Country: US (occurrence: None)
  Receive Date: 20160201
  Receipt Date: 20160201
  Transmission Date: 20160526
  Serious: No
  Sender: FDA-Public Use
  Company Number: None

PATIENT

DRUGS (2)
  1. ONDANSETRON [Suspect]
     Active Substance: ONDANSETRON
     Route: 048
  2. ZYPREXA [Suspect]
     Active Substance: OLANZAPINE
     Route: 048

REACTIONS (3)
  - Wrong drug administered [None]
  - Product name confusion [None]
  - Drug dispensing error [None]
